FAERS Safety Report 4828403-1 (Version None)
Quarter: 2005Q4

REPORT INFORMATION
  Report Type: 
  Country: None (occurrence: None)
  Receive Date: 20051109
  Receipt Date: 20051104
  Transmission Date: 20060501
  Serious: Yes (Disabling)
  Sender: FDA-Public Use
  Company Number: 200509496

PATIENT
  Age: 51 Year
  Sex: Male

DRUGS (5)
  1. GAMMAR-P I.V. [Suspect]
     Indication: SELECTIVE IGA IMMUNODEFICIENCY
     Dosage: 25 G DAILY IV
     Route: 042
     Dates: start: 19940301
  2. GAMMAGARD [Suspect]
     Indication: SELECTIVE IGA IMMUNODEFICIENCY
     Dates: start: 19940301
  3. POLYGAM S/D [Suspect]
     Indication: SELECTIVE IGA IMMUNODEFICIENCY
     Dates: start: 19940301
  4. VENOGLOBULIN [Suspect]
     Indication: SELECTIVE IGA IMMUNODEFICIENCY
     Dates: start: 19940301
  5. CARIMUNE [Suspect]
     Indication: SELECTIVE IGA IMMUNODEFICIENCY
     Dates: start: 19940301

REACTIONS (1)
  - HEPATITIS C [None]
